FAERS Safety Report 17286969 (Version 4)
Quarter: 2020Q1

REPORT INFORMATION
  Report Type: Spontaneous
  Country: CA (occurrence: CA)
  Receive Date: 20200120
  Receipt Date: 20200318
  Transmission Date: 20200409
  Serious: Yes (Other)
  Sender: FDA-Public Use
  Company Number: CA-PFIZER INC-2020018845

PATIENT
  Age: 69 Year
  Sex: Male

DRUGS (2)
  1. PLAQUENIL [Concomitant]
     Active Substance: HYDROXYCHLOROQUINE SULFATE
     Dosage: UNK
  2. IBUPROFEN. [Suspect]
     Active Substance: IBUPROFEN
     Dosage: UNK

REACTIONS (4)
  - Muscle atrophy [Unknown]
  - Anaemia [Unknown]
  - Psoriatic arthropathy [Unknown]
  - Disease progression [Unknown]

NARRATIVE: CASE EVENT DATE: 2016
